FAERS Safety Report 4401482-1 (Version None)
Quarter: 2004Q3

REPORT INFORMATION
  Report Type: 
  Country: None (occurrence: None)
  Receive Date: 20040907
  Receipt Date: 20040526
  Transmission Date: 20050211
  Serious: Yes (Hospitalization)
  Sender: FDA-Public Use
  Company Number: US-BRISTOL-MYERS SQUIBB COMPANY-12597159

PATIENT
  Age: 8 Decade
  Sex: Female

DRUGS (5)
  1. COUMADIN [Suspect]
     Indication: HEART VALVE REPLACEMENT
     Dosage: ALTERN. DOSE-2MG AND 5MG DAILY, DEPENDING ON INR'S,GIVEN 3 DAYS IN MAY-04 PLAN ON RESTARTING
     Route: 048
     Dates: start: 20040401
  2. DOPAMINE HCL [Concomitant]
  3. LEVAQUIN [Concomitant]
  4. LOVENOX [Concomitant]
  5. VERSED [Concomitant]

REACTIONS (2)
  - BLUE TOE SYNDROME [None]
  - DRY GANGRENE [None]
